FAERS Safety Report 8981155 (Version 2)
Quarter: 2013Q1

REPORT INFORMATION
  Report Type: Report from Study
  Country: GB (occurrence: GB)
  Receive Date: 20121221
  Receipt Date: 20130121
  Transmission Date: 20140127
  Serious: Yes (Other)
  Sender: FDA-Public Use
  Company Number: GB-VIIV HEALTHCARE LIMITED-A1006126A

PATIENT
  Age: 45 Year
  Sex: Female

DRUGS (2)
  1. EPZICOM [Suspect]
     Indication: ANTIRETROVIRAL THERAPY
     Dosage: 1TAB PER DAY
     Route: 048
  2. SUSTIVA [Suspect]
     Indication: ANTIRETROVIRAL THERAPY
     Dosage: 600MG PER DAY
     Route: 048

REACTIONS (3)
  - Ectopic pregnancy [Unknown]
  - Abortion induced [Unknown]
  - Exposure during pregnancy [Unknown]
